FAERS Safety Report 9073529 (Version 1)
Quarter: 2013Q1

REPORT INFORMATION
  Report Type: Report from Study
  Country: US (occurrence: US)
  Receive Date: 20130129
  Receipt Date: 20130129
  Transmission Date: 20140127
  Serious: No
  Sender: FDA-Public Use
  Company Number: US-ABBOTT-12P-163-0942034-00

PATIENT
  Age: 57 Year
  Sex: Male

DRUGS (4)
  1. HUMIRA 40 MG/0.8 ML PEN [Suspect]
     Indication: CROHN^S DISEASE
     Dates: start: 20120403
  2. VITAMIN D [Concomitant]
     Indication: PRODUCT USED FOR UNKNOWN INDICATION
     Dosage: 50,000 IU MONTHLY
  3. IRON [Concomitant]
     Indication: IRON DEFICIENCY
     Dosage: DAILY
  4. ANDROGEL [Concomitant]
     Indication: BLOOD TESTOSTERONE DECREASED
     Dosage: APPLICATION DAILY

REACTIONS (1)
  - Epistaxis [Recovered/Resolved]
